FAERS Safety Report 5313472-5 (Version None)
Quarter: 2007Q1

REPORT INFORMATION
  Report Type: 
  Country: None (occurrence: None)
  Receive Date: 20070130
  Receipt Date: 20060922
  Transmission Date: 20070707
  Serious: Yes (Other)
  Sender: FDA-Public Use
  Company Number: 146457USA

PATIENT
  Age: 57 Year
  Sex: Female

DRUGS (4)
  1. COPAXONE [Suspect]
     Indication: MULTIPLE SCLEROSIS
     Dosage: (20 MG), SUBCUTANEOUS
     Route: 058
     Dates: start: 19980215, end: 20060602
  2. LEVOTHYROXINE SODIUM [Concomitant]
  3. VITAMIN CAP [Concomitant]
  4. GABAPENTIN [Concomitant]

REACTIONS (6)
  - HYPOAESTHESIA [None]
  - INJECTION SITE ERYTHEMA [None]
  - INJECTION SITE NECROSIS [None]
  - INJECTION SITE PAIN [None]
  - INJECTION SITE SCAB [None]
  - PAIN IN EXTREMITY [None]
